FAERS Safety Report 25273033 (Version 1)
Quarter: 2025Q2

REPORT INFORMATION
  Report Type: Other
  Country: US (occurrence: US)
  Receive Date: 20250506
  Receipt Date: 20250506
  Transmission Date: 20250717
  Serious: No
  Sender: TRAVERE THERAPEUTICS
  Company Number: US-TRAVERE-2025TVT00529

PATIENT
  Age: 31 Year
  Sex: Male

DRUGS (3)
  1. FILSPARI [Suspect]
     Active Substance: SPARSENTAN
     Indication: IgA nephropathy
     Dosage: 2 200MG TABLETS EVERY DAY
     Route: 048
     Dates: start: 20250408
  2. FILSPARI [Suspect]
     Active Substance: SPARSENTAN
     Dosage: 1 200MG TABLET EVERY DAY
     Route: 048
     Dates: start: 202504
  3. FILSPARI [Suspect]
     Active Substance: SPARSENTAN
     Dosage: 2 200MG TABLETS EVERY DAY
     Route: 048
     Dates: start: 202504

REACTIONS (2)
  - Nausea [Unknown]
  - Incorrect dose administered [Unknown]
